FAERS Safety Report 5315980-X (Version None)
Quarter: 2007Q2

REPORT INFORMATION
  Report Type: 
  Country: None (occurrence: None)
  Receive Date: 20070503
  Receipt Date: 20070420
  Transmission Date: 20071010
  Serious: Yes (Hospitalization)
  Sender: FDA-Public Use
  Company Number: JP-ROCHE-486512

PATIENT
  Age: 6 Month
  Sex: Male

DRUGS (1)
  1. TAMIFLU [Suspect]
     Indication: DRUG USE FOR UNKNOWN INDICATION
     Dosage: DRUG REPORTED AS TAMIFLU DRY SYRUP 3%.
     Route: 048
     Dates: start: 20070211, end: 20070211

REACTIONS (1)
  - CONVULSION [None]
